FAERS Safety Report 19079053 (Version 1)
Quarter: 2021Q1

REPORT INFORMATION
  Report Type: Spontaneous
  Country: US (occurrence: US)
  Receive Date: 20210331
  Receipt Date: 20210331
  Transmission Date: 20210420
  Serious: No
  Sender: FDA-Public Use
  Company Number: US-PFIZER INC-2021333076

PATIENT
  Age: 61 Year
  Sex: Female
  Weight: 60.32 kg

DRUGS (5)
  1. BOSULIF [Suspect]
     Active Substance: BOSUTINIB MONOHYDRATE
     Indication: CHRONIC MYELOID LEUKAEMIA
     Dosage: 300 MG, DAILY
     Route: 048
     Dates: start: 202011
  2. COREG [Concomitant]
     Active Substance: CARVEDILOL
     Dosage: 12.5 MG
  3. HYDROXYUREA. [Concomitant]
     Active Substance: HYDROXYUREA
     Dosage: UNK, (100 % POWDER)
  4. LIPITOR [Concomitant]
     Active Substance: ATORVASTATIN CALCIUM
     Dosage: 10 MG
  5. FOLVITE ACTIVE [Concomitant]
     Dosage: UNK

REACTIONS (1)
  - Diarrhoea [Unknown]
